FAERS Safety Report 4508323-2 (Version None)
Quarter: 2004Q4

REPORT INFORMATION
  Report Type: 
  Country: None (occurrence: None)
  Receive Date: 20041123
  Receipt Date: 20040106
  Transmission Date: 20050328
  Serious: Yes (Other)
  Sender: FDA-Public Use
  Company Number: US-GLAXOSMITHKLINE-A0491743A

PATIENT
  Age: 37 Year
  Sex: Male
  Weight: 84.1 kg

DRUGS (2)
  1. WELLBUTRIN [Suspect]
     Indication: DEPRESSION
     Dosage: 150MG TWICE PER DAY
     Route: 048
     Dates: start: 20030523, end: 20030711
  2. ALCOHOL [Suspect]

REACTIONS (5)
  - GRAND MAL CONVULSION [None]
  - LOSS OF CONSCIOUSNESS [None]
  - MYALGIA [None]
  - PARAESTHESIA [None]
  - TREMOR [None]
